FAERS Safety Report 14527599 (Version 1)
Quarter: 2018Q1

REPORT INFORMATION
  Report Type: Spontaneous
  Country: US (occurrence: US)
  Receive Date: 20180213
  Receipt Date: 20180213
  Transmission Date: 20180509
  Serious: No
  Sender: FDA-Public Use
  Company Number: US-PFIZER INC-2018062034

PATIENT
  Age: 72 Year
  Sex: Female

DRUGS (1)
  1. SUTENT [Suspect]
     Active Substance: SUNITINIB MALATE
     Indication: GASTROINTESTINAL STROMAL TUMOUR
     Dosage: 25 MG, CYCLIC (3 WEEKS ON AND 1 WEEK OFF)
     Dates: start: 20180117

REACTIONS (4)
  - Asthenia [Not Recovered/Not Resolved]
  - Pyrexia [Unknown]
  - Product use issue [Unknown]
  - Chills [Recovering/Resolving]

NARRATIVE: CASE EVENT DATE: 2018
